FAERS Safety Report 5781173-5 (Version None)
Quarter: 2008Q2

REPORT INFORMATION
  Report Type: 
  Country: None (occurrence: None)
  Receive Date: 20080618
  Receipt Date: 20080609
  Transmission Date: 20081010
  Serious: Yes (Other)
  Sender: FDA-Public Use
  Company Number: 08H-163-0314396-00

PATIENT
  Age: 66 Year
  Sex: Male
  Weight: 81 kg

DRUGS (6)
  1. LIDOCAINE [Suspect]
     Indication: SPINAL ANAESTHESIA
     Dosage: 80 MG
  2. FENTANYL [Concomitant]
  3. ATENOLOL [Concomitant]
  4. MINOCYCLINE HCL [Concomitant]
  5. CEFAZOLIN [Concomitant]
  6. MIDAZOLAM HCL [Concomitant]

REACTIONS (3)
  - ANAESTHETIC COMPLICATION [None]
  - DIZZINESS [None]
  - HYPOTENSION [None]
